FAERS Safety Report 26044014 (Version 1)
Quarter: 2025Q4

REPORT INFORMATION
  Report Type: Spontaneous
  Country: EU (occurrence: EU)
  Receive Date: 20251114
  Receipt Date: 20251114
  Transmission Date: 20260117
  Serious: Yes (Life-Threatening, Other)
  Sender: ALKEM
  Company Number: EU-ALKEM LABORATORIES LIMITED-FR-ALKEM-2025-11953

PATIENT
  Age: 35 Year
  Sex: Female

DRUGS (2)
  1. NIMODIPINE [Suspect]
     Active Substance: NIMODIPINE
     Indication: Vasospasm
     Dosage: UNK
     Route: 042
  2. MILRINONE [Suspect]
     Active Substance: MILRINONE
     Indication: Vasospasm
     Dosage: UNK
     Route: 065

REACTIONS (4)
  - Diabetes insipidus [Unknown]
  - Circulatory collapse [Recovered/Resolved]
  - Cerebral salt-wasting syndrome [Unknown]
  - Polyuria [Unknown]
